FAERS Safety Report 9466717 (Version 2)
Quarter: 2013Q3

REPORT INFORMATION
  Report Type: Spontaneous
  Country: US (occurrence: US)
  Receive Date: 20130820
  Receipt Date: 20130820
  Transmission Date: 20140515
  Serious: No
  Sender: FDA-Public Use
  Company Number: US-TEVA-377714USA

PATIENT
  Sex: Female

DRUGS (5)
  1. FLUCONAZOLE [Suspect]
     Indication: CANDIDA INFECTION
     Dosage: ON MED FOR 3 WEEKS
  2. FLUCONAZOLE [Interacting]
     Indication: FUNGAL INFECTION
  3. GARLIC TABLETS [Interacting]
  4. YEAST CLEANSE [Interacting]
  5. MULTIVITAMIN [Interacting]

REACTIONS (2)
  - Drug interaction [Recovering/Resolving]
  - Drug ineffective [Recovering/Resolving]
